FAERS Safety Report 23871585 (Version 1)
Quarter: 2024Q2

REPORT INFORMATION
  Report Type: Spontaneous
  Country: US (occurrence: US)
  Receive Date: 20240519
  Receipt Date: 20240519
  Transmission Date: 20240716
  Serious: Yes (Other)
  Sender: FDA-Public Use
  Company Number: US-BRISTOL-MYERS SQUIBB COMPANY-2024-074241

PATIENT
  Age: 79 Year
  Sex: Female
  Weight: 95.2 kg

DRUGS (6)
  1. ABRAXANE [Suspect]
     Active Substance: PACLITAXEL
     Indication: Breast cancer metastatic
     Dosage: DOSE : 160 MG/M2 TOTAL 300MG TOTAL;     FREQ : ONCE EVERY 21 DAYS. ROUTE OF ADMINISTRATION : IV INFU
     Route: 042
     Dates: start: 20240509
  2. XGEVA [Concomitant]
     Active Substance: DENOSUMAB
  3. FAMOTIDINE [Concomitant]
     Active Substance: FAMOTIDINE
  4. ACETAMINOPHEN [Concomitant]
     Active Substance: ACETAMINOPHEN
  5. DIPHENHYDRAMINE [Concomitant]
     Active Substance: DIPHENHYDRAMINE
  6. DEXAMETHASONE [Concomitant]
     Active Substance: DEXAMETHASONE

REACTIONS (1)
  - Vascular access site occlusion [Unknown]
